FAERS Safety Report 11238288 (Version 1)
Quarter: 2015Q3

REPORT INFORMATION
  Report Type: Report from Study
  Country: US (occurrence: US)
  Receive Date: 20150704
  Receipt Date: 20150704
  Transmission Date: 20151125
  Serious: No
  Sender: FDA-Public Use
  Company Number: PHEH2015US002620

PATIENT
  Age: 54 Year
  Sex: Female

DRUGS (6)
  1. EXTAVIA [Suspect]
     Active Substance: INTERFERON BETA-1B
     Dosage: 0.187 MG, QOD ((WEEKS 5 TO 6, 0.75 ML)
     Route: 058
  2. LOVENOX [Concomitant]
     Active Substance: ENOXAPARIN SODIUM
     Indication: PRODUCT USED FOR UNKNOWN INDICATION
     Route: 065
  3. EXTAVIA [Suspect]
     Active Substance: INTERFERON BETA-1B
     Dosage: 0.25 MG, QOD ((WEEKS 7, 1 ML)
     Route: 058
  4. EXTAVIA [Suspect]
     Active Substance: INTERFERON BETA-1B
     Indication: MULTIPLE SCLEROSIS
     Dosage: 0.062 MG, QOD (WEEKS 1 TO 2, 0.25 ML)
     Route: 058
     Dates: start: 20150105
  5. EXTAVIA [Suspect]
     Active Substance: INTERFERON BETA-1B
     Dosage: 0.125 MG, QOD ((WEEKS 3 TO 4, 0.5 ML)
     Route: 058
  6. TYLENOL [Concomitant]
     Active Substance: ACETAMINOPHEN
     Indication: PRODUCT USED FOR UNKNOWN INDICATION
     Dosage: WAS USED PRIOR TO INJECTION
     Route: 065

REACTIONS (12)
  - Pain [Unknown]
  - Peripheral coldness [Unknown]
  - Tremor [Unknown]
  - Pyrexia [Unknown]
  - Oropharyngeal pain [Unknown]
  - Arthralgia [Unknown]
  - Inappropriate schedule of drug administration [Unknown]
  - Cyanosis [Unknown]
  - Muscle twitching [Unknown]
  - Discomfort [Unknown]
  - Influenza like illness [Unknown]
  - Musculoskeletal stiffness [Unknown]

NARRATIVE: CASE EVENT DATE: 20150226
